FAERS Safety Report 15256027 (Version 1)
Quarter: 2018Q3

REPORT INFORMATION
  Report Type: Spontaneous
  Country: FR (occurrence: FR)
  Receive Date: 20180808
  Receipt Date: 20180808
  Transmission Date: 20181010
  Serious: Yes (Other)
  Sender: FDA-Public Use
  Company Number: FR-ROCHE-2167409

PATIENT
  Age: 77 Year
  Sex: Male

DRUGS (1)
  1. ROACTEMRA [Suspect]
     Active Substance: TOCILIZUMAB
     Indication: TEMPORAL ARTERITIS
     Route: 041

REACTIONS (3)
  - Hepatitis cholestatic [Not Recovered/Not Resolved]
  - Deep vein thrombosis [Unknown]
  - Pulmonary embolism [Unknown]
